FAERS Safety Report 18201024 (Version 1)
Quarter: 2020Q3

REPORT INFORMATION
  Report Type: Spontaneous
  Country: US (occurrence: US)
  Receive Date: 20200826
  Receipt Date: 20200826
  Transmission Date: 20201103
  Serious: Yes (Other)
  Sender: FDA-Public Use
  Company Number: US-BAXTER-2020BAX017336

PATIENT

DRUGS (1)
  1. TISSEEL [Suspect]
     Active Substance: FIBRINOGEN HUMAN\THROMBIN HUMAN
     Indication: TISSUE SEALING
     Dosage: TISSEEL PRE?FILLED PRIMA SYRINGE, 10ML
     Route: 065

REACTIONS (1)
  - Postoperative wound infection [Unknown]

NARRATIVE: CASE EVENT DATE: 20200818
